FAERS Safety Report 8630599 (Version 2)
Quarter: 2013Q3

REPORT INFORMATION
  Report Type: Spontaneous
  Country: US (occurrence: US)
  Receive Date: 20120622
  Receipt Date: 20130722
  Transmission Date: 20140515
  Serious: Yes (Hospitalization, Disabling, Other)
  Sender: FDA-Public Use
  Company Number: US-ASTRAZENECA-2012SE34526

PATIENT
  Age: 829 Month
  Sex: Female
  Weight: 95.3 kg

DRUGS (10)
  1. NEXIUM [Suspect]
     Indication: GASTROOESOPHAGEAL REFLUX DISEASE
     Dosage: 20 MG 1/DAY 1 YEAR 2/DAY
     Route: 048
     Dates: start: 2007, end: 2012
  2. OMEPRAZOLE [Suspect]
     Indication: GASTROOESOPHAGEAL REFLUX DISEASE
     Dosage: 40 MG 1/DAY
     Route: 048
     Dates: start: 2012
  3. ZANTAC [Concomitant]
  4. TUMS [Concomitant]
     Dosage: TAKEN OCASSIONALLY AS NEEDED
  5. ALKA-SELTZER [Concomitant]
  6. LORITAB [Concomitant]
     Indication: PAIN
  7. OXYCODON [Concomitant]
     Indication: PAIN
  8. GABAPENTIN [Concomitant]
     Indication: NERVE INJURY
  9. MULTIPLE VITAMIN [Concomitant]
  10. FISH OIL [Concomitant]

REACTIONS (9)
  - Spinal fracture [Unknown]
  - Road traffic accident [Unknown]
  - Gastrointestinal disorder [Unknown]
  - Osteoporosis [Unknown]
  - Multiple fractures [Unknown]
  - Osteoarthritis [Unknown]
  - Hand fracture [Unknown]
  - Upper limb fracture [Unknown]
  - Fall [Unknown]
